FAERS Safety Report 22049089 (Version 1)
Quarter: 2023Q1

REPORT INFORMATION
  Report Type: Spontaneous
  Country: US (occurrence: None)
  Receive Date: 20230228
  Receipt Date: 20230228
  Transmission Date: 20230417
  Serious: Yes (Hospitalization, Disabling, Other)
  Sender: FDA-Public Use
  Company Number: None

PATIENT
  Age: 68 Year
  Sex: Female
  Weight: 53 kg

DRUGS (4)
  1. DUPIXENT [Suspect]
     Active Substance: DUPILUMAB
     Indication: Sinusitis
     Dates: start: 20220822, end: 20220908
  2. LISINOPRIL [Concomitant]
     Active Substance: LISINOPRIL
  3. PREDNISONE [Concomitant]
     Active Substance: PREDNISONE
  4. DOXYCYCLINE [Concomitant]
     Active Substance: DOXYCYCLINE

REACTIONS (6)
  - Mononeuropathy multiplex [None]
  - Red blood cell sedimentation rate increased [None]
  - C-reactive protein increased [None]
  - Electromyogram abnormal [None]
  - Magnetic resonance imaging head abnormal [None]
  - Vasculitis [None]

NARRATIVE: CASE EVENT DATE: 20220908
